FAERS Safety Report 10359858 (Version 1)
Quarter: 2014Q3

REPORT INFORMATION
  Report Type: Spontaneous
  Country: GB (occurrence: None)
  Receive Date: 20140730
  Receipt Date: 20140730
  Transmission Date: 20150326
  Serious: Yes (Other)
  Sender: FDA-Public Use
  Company Number: AUR-APL-2014-07947

PATIENT
  Sex: Female

DRUGS (1)
  1. ALENDRONIC ACID TABLETS (ALENDRONIC ACID) TABLET, UNKNOWN [Suspect]
     Active Substance: ALENDRONIC ACID
     Indication: OSTEOPOROSIS POSTMENOPAUSAL

REACTIONS (1)
  - Foot fracture [None]
